FAERS Safety Report 21381926 (Version 5)
Quarter: 2022Q4

REPORT INFORMATION
  Report Type: Spontaneous
  Country: CO (occurrence: CO)
  Receive Date: 20220927
  Receipt Date: 20221025
  Transmission Date: 20230113
  Serious: Yes (Death, Hospitalization, Other)
  Sender: FDA-Public Use
  Company Number: CO-BAYER-2022A133760

PATIENT
  Age: 64 Year
  Sex: Male

DRUGS (4)
  1. NEXAVAR [Suspect]
     Active Substance: SORAFENIB
     Indication: Thyroid cancer
     Dosage: 200 MG, BID
     Route: 048
     Dates: start: 20220620, end: 20220909
  2. IRBESARTAN [Concomitant]
     Active Substance: IRBESARTAN
     Dosage: UNK
  3. AMLODIPINE [Concomitant]
     Active Substance: AMLODIPINE BESYLATE
     Dosage: UNK
  4. LEVOTHYROXINE [Concomitant]
     Active Substance: LEVOTHYROXINE
     Dosage: UNK

REACTIONS (7)
  - Cardio-respiratory arrest [Fatal]
  - Haematuria [Fatal]
  - Haemoptysis [Fatal]
  - Metastases to lung [None]
  - Metastases to spine [None]
  - Off label use [None]
  - Haemorrhage [None]

NARRATIVE: CASE EVENT DATE: 20220621
